FAERS Safety Report 20964073 (Version 1)
Quarter: 2022Q2

REPORT INFORMATION
  Report Type: Spontaneous
  Country: BR (occurrence: BR)
  Receive Date: 20220615
  Receipt Date: 20220615
  Transmission Date: 20220720
  Serious: Yes (Other)
  Sender: FDA-Public Use
  Company Number: BR-SCALL-2022-BR-000049

PATIENT
  Sex: Male

DRUGS (1)
  1. DUTASTERIDE\TAMSULOSIN HYDROCHLORIDE [Suspect]
     Active Substance: DUTASTERIDE\TAMSULOSIN HYDROCHLORIDE
     Indication: Product used for unknown indication
     Route: 048
     Dates: end: 2021

REACTIONS (3)
  - Blindness [Unknown]
  - Deafness [Unknown]
  - Cataract [Unknown]

NARRATIVE: CASE EVENT DATE: 20210101
